FAERS Safety Report 9224626 (Version 1)
Quarter: 2013Q2

REPORT INFORMATION
  Report Type: Spontaneous
  Country: US (occurrence: None)
  Receive Date: 20130411
  Receipt Date: 20130411
  Transmission Date: 20140414
  Serious: Yes (Death)
  Sender: FDA-Public Use
  Company Number: None

PATIENT
  Age: 67 Year
  Sex: Male
  Weight: 38 kg

DRUGS (2)
  1. WARFARIN 5MG UNKNOWN [Suspect]
     Indication: PULMONARY EMBOLISM
     Dosage: 5MG MWF PO  SEVERAL MONTHS
     Route: 048
  2. WARFARIN 7.5MG UNKNOWN [Suspect]
     Indication: PULMONARY EMBOLISM
     Dosage: 7.5MG TUES, THURS, SAT, SUN PO
     Route: 048

REACTIONS (1)
  - Haemorrhage intracranial [None]
